FAERS Safety Report 9367141 (Version 1)
Quarter: 2013Q2

REPORT INFORMATION
  Report Type: Spontaneous
  Country: US (occurrence: US)
  Receive Date: 20130625
  Receipt Date: 20130625
  Transmission Date: 20140414
  Serious: No
  Sender: FDA-Public Use
  Company Number: US-ASTELLAS-2012US004823

PATIENT
  Sex: 0

DRUGS (3)
  1. VESICARE [Suspect]
     Indication: HYPERTONIC BLADDER
     Dosage: 10 MG, UID/QD
     Route: 048
     Dates: start: 200609
  2. PROCARDIA [Concomitant]
     Indication: HYPERTENSION
     Dosage: UNK MG, UID/QD
     Route: 048
  3. DIOVAN [Concomitant]
     Indication: HYPERTENSION
     Dosage: 60 MG, UID/QD
     Route: 048

REACTIONS (1)
  - Arthralgia [Recovering/Resolving]
